FAERS Safety Report 9734124 (Version 3)
Quarter: 2014Q2

REPORT INFORMATION
  Report Type: Spontaneous
  Country: CA (occurrence: CA)
  Receive Date: 20131205
  Receipt Date: 20140428
  Transmission Date: 20141212
  Serious: Yes (Hospitalization, Other)
  Sender: FDA-Public Use
  Company Number: CA-VERTEX PHARMACEUTICALS INC-2013-011523

PATIENT
  Age: 58 Year
  Sex: Female

DRUGS (4)
  1. INCIVEK [Suspect]
     Indication: CHRONIC HEPATITIS C
     Dosage: 750 MG, TID
     Route: 048
     Dates: start: 20130221, end: 201304
  2. PEGASYS [Suspect]
     Indication: CHRONIC HEPATITIS C
     Dosage: 180 ?G, QW
     Route: 058
     Dates: start: 20130221, end: 201304
  3. RIBAVIRIN [Suspect]
     Indication: CHRONIC HEPATITIS C
     Dosage: UNK
     Route: 065
     Dates: start: 20130221, end: 201304
  4. OXYNEO [Concomitant]
     Dosage: UNK

REACTIONS (7)
  - Hepatic failure [Unknown]
  - Haemoglobin decreased [Recovered/Resolved]
  - Sepsis [Unknown]
  - Cystitis [Unknown]
  - Disease progression [Unknown]
  - Anaemia [Unknown]
  - Platelet count decreased [Unknown]
